FAERS Safety Report 15480401 (Version 2)
Quarter: 2018Q4

REPORT INFORMATION
  Report Type: Spontaneous
  Country: US (occurrence: US)
  Receive Date: 20181009
  Receipt Date: 20181119
  Transmission Date: 20190205
  Serious: No
  Sender: FDA-Public Use
  Company Number: US-ASTRAZENECA-2018SF18671

PATIENT
  Age: 233 Day
  Sex: Female
  Weight: 80.7 kg

DRUGS (1)
  1. BYDUREON BCISE [Suspect]
     Active Substance: EXENATIDE
     Indication: TYPE 2 DIABETES MELLITUS
     Route: 058
     Dates: start: 20180909

REACTIONS (8)
  - Contusion [Unknown]
  - Device use issue [Unknown]
  - Injection site vesicles [Not Recovered/Not Resolved]
  - Injection site erythema [Unknown]
  - Hypoglycaemia [Unknown]
  - Vision blurred [Unknown]
  - Device malfunction [Unknown]
  - Injection site pain [Recovered/Resolved]

NARRATIVE: CASE EVENT DATE: 20180909
